FAERS Safety Report 6000001-6 (Version None)
Quarter: 2008Q4

REPORT INFORMATION
  Report Type: 
  Country: None (occurrence: None)
  Receive Date: 20081211
  Receipt Date: 20081126
  Transmission Date: 20090506
  Serious: Yes (Other)
  Sender: FDA-Public Use
  Company Number: 2008S1021224

PATIENT
  Sex: Male

DRUGS (5)
  1. DOXYCYCLINE [Suspect]
     Indication: ACNE
  2. RAPAMUNE [Suspect]
     Indication: RENAL DISORDER
     Dosage: 1 MG; ONCE;
     Dates: start: 20061001
  3. ATENOLOL [Concomitant]
  4. AZATHIOPRINE [Concomitant]
  5. LOSARTAN [Concomitant]

REACTIONS (3)
  - BLOOD CREATINE PHOSPHOKINASE INCREASED [None]
  - MUSCULAR WEAKNESS [None]
  - MYALGIA [None]
